FAERS Safety Report 4640642-1 (Version None)
Quarter: 2005Q2

REPORT INFORMATION
  Report Type: 
  Country: None (occurrence: None)
  Receive Date: 20050419
  Receipt Date: 20050406
  Transmission Date: 20051028
  Serious: Yes (Hospitalization)
  Sender: FDA-Public Use
  Company Number: 2004012625

PATIENT
  Age: 24 Year
  Sex: Male

DRUGS (8)
  1. AZITHROMYCIN [Suspect]
     Indication: ILL-DEFINED DISORDER
     Dosage: 600 MG (DAILY)
     Dates: start: 20031205
  2. ATAZANAVIR (ATAZANAVIR) [Suspect]
     Indication: HIV INFECTION
     Dosage: 300 MG (DAILY), ORAL
     Route: 048
     Dates: start: 20030704
  3. DIDANOSINE [Suspect]
     Indication: HIV INFECTION
     Dosage: 250 MG (DAILY)
     Dates: start: 20030704
  4. ETHAMBUTOL (ETHAMBUTOL) [Suspect]
     Indication: ILL-DEFINED DISORDER
     Dosage: 800 MG (DAILY)
     Dates: start: 20031205
  5. LAMIVUDINE [Suspect]
     Indication: HIV INFECTION
     Dates: start: 20030704
  6. TENOFOVIR (TENOFOVIR) [Suspect]
     Indication: ILL-DEFINED DISORDER
     Dates: start: 20030704
  7. KALETRA [Suspect]
     Indication: HIV INFECTION
     Dates: start: 20030704
  8. BACTRIM [Suspect]
     Indication: ILL-DEFINED DISORDER

REACTIONS (15)
  - ABDOMINAL DISTENSION [None]
  - ABDOMINAL PAIN [None]
  - ATYPICAL MYCOBACTERIAL LYMPHADENITIS [None]
  - DRUG TOLERANCE [None]
  - DRUG TOLERANCE INCREASED [None]
  - GASTRITIS [None]
  - GASTROINTESTINAL DISORDER [None]
  - HEPATOMEGALY [None]
  - LYMPHADENITIS [None]
  - LYMPHADENOPATHY [None]
  - MYCOBACTERIUM AVIUM COMPLEX INFECTION [None]
  - NAUSEA [None]
  - PAIN [None]
  - VOMITING [None]
  - WEIGHT DECREASED [None]
